FAERS Safety Report 5371141-X (Version None)
Quarter: 2007Q2

REPORT INFORMATION
  Report Type: 
  Country: None (occurrence: None)
  Receive Date: 20070614
  Receipt Date: 20070320
  Transmission Date: 20071010
  Serious: No
  Sender: FDA-Public Use
  Company Number: BDI-009262

PATIENT
  Age: 34 Year
  Sex: Female

DRUGS (3)
  1. MULTIHANCE [Suspect]
     Indication: GASTROINTESTINAL DISORDER
     Dosage: 10 ML ONCE IV
     Route: 042
     Dates: start: 20070320, end: 20070320
  2. MULTIHANCE [Suspect]
     Indication: NUCLEAR MAGNETIC RESONANCE IMAGING
     Dosage: 10 ML ONCE IV
     Route: 042
     Dates: start: 20070320, end: 20070320
  3. LOESTRIN [Concomitant]

REACTIONS (2)
  - NAUSEA [None]
  - PRURITUS [None]
